FAERS Safety Report 14025374 (Version 2)
Quarter: 2017Q4

REPORT INFORMATION
  Report Type: Spontaneous
  Country: FI (occurrence: FI)
  Receive Date: 20170929
  Receipt Date: 20171003
  Transmission Date: 20180321
  Serious: Yes (Death, Other)
  Sender: FDA-Public Use
  Company Number: FI-GLAXOSMITHKLINE-FI2017GSK149840

PATIENT
  Sex: Female

DRUGS (5)
  1. FURESIS [Concomitant]
     Active Substance: FUROSEMIDE
     Indication: DIURETIC THERAPY
     Dosage: 20 MG, BID
     Route: 048
     Dates: start: 20170830, end: 20170904
  2. SOMAC [Concomitant]
     Active Substance: PANTOPRAZOLE SODIUM
     Indication: PROPHYLAXIS
     Dosage: 40 MG, 1D
     Route: 048
     Dates: start: 20170830, end: 20170908
  3. ZINACEF [Suspect]
     Active Substance: CEFUROXIME SODIUM
     Indication: PNEUMONIA
     Dosage: 1500 MG, TID
     Route: 042
     Dates: start: 20170830, end: 20170831
  4. BISOPROLOL TABLET [Concomitant]
     Indication: ATRIAL FIBRILLATION
     Dosage: 2500 ?G, BID
     Route: 048
     Dates: start: 20170830, end: 20170906
  5. TARGINIQ ER [Concomitant]
     Active Substance: NALOXONE HYDROCHLORIDE\OXYCODONE HYDROCHLORIDE
     Indication: PAIN
     Dosage: 10 MG, BID
     Route: 048
     Dates: start: 20170823, end: 20170903

REACTIONS (1)
  - Toxic epidermal necrolysis [Fatal]
